FAERS Safety Report 22277714 (Version 2)
Quarter: 2023Q2

REPORT INFORMATION
  Report Type: Spontaneous
  Country: FR (occurrence: FR)
  Receive Date: 20230503
  Receipt Date: 20230605
  Transmission Date: 20230722
  Serious: Yes (Death, Other)
  Sender: FDA-Public Use
  Company Number: FR-AMGEN-FRASP2023072700

PATIENT

DRUGS (2)
  1. BEVACIZUMAB [Suspect]
     Active Substance: BEVACIZUMAB
     Indication: HER2 negative breast cancer
     Route: 065
  2. CAPECITABINE [Concomitant]
     Active Substance: CAPECITABINE

REACTIONS (9)
  - Breast cancer metastatic [Fatal]
  - Paronychia [Unknown]
  - Neuropathy peripheral [Unknown]
  - Mucosal disorder [Unknown]
  - Fluid retention [Unknown]
  - Off label use [Unknown]
  - Haematotoxicity [Unknown]
  - Gastrointestinal disorder [Unknown]
  - Asthenia [Unknown]
